FAERS Safety Report 8435897-1 (Version None)
Quarter: 2012Q2

REPORT INFORMATION
  Report Type: 
  Country: None (occurrence: None)
  Receive Date: 20120614
  Receipt Date: 20120605
  Transmission Date: 20120825
  Serious: Yes (Disabling)
  Sender: FDA-Public Use
  Company Number: AU-ROCHE-1056822

PATIENT
  Sex: Female
  Weight: 54 kg

DRUGS (5)
  1. ESTRADIOL [Concomitant]
     Indication: HORMONE REPLACEMENT THERAPY
  2. OXYCONTIN [Concomitant]
     Indication: PAIN
  3. VALIUM [Suspect]
     Indication: PANIC ATTACK
  4. ACETAMINOPHEN W/ CODEINE [Concomitant]
     Indication: PAIN
  5. VALIUM [Suspect]
     Indication: MUSCLE RELAXANT THERAPY
     Dosage: 1-2 AS REQUIRED
     Route: 048

REACTIONS (2)
  - SENSORY DISTURBANCE [None]
  - DRUG INEFFECTIVE [None]
